FAERS Safety Report 6642192-X (Version None)
Quarter: 2010Q1

REPORT INFORMATION
  Report Type: 
  Country: None (occurrence: None)
  Receive Date: 20100319
  Receipt Date: 20100309
  Transmission Date: 20100710
  Serious: Yes (Other)
  Sender: FDA-Public Use
  Company Number: US-PFIZER INC-2010031476

PATIENT
  Sex: Female
  Weight: 72.562 kg

DRUGS (2)
  1. CHANTIX [Suspect]
     Indication: SMOKING CESSATION THERAPY
     Dosage: 0.5 MG, 1X/DAY
     Route: 048
     Dates: start: 20100201, end: 20100301
  2. TEGRETOL [Concomitant]
     Indication: EPILEPSY
     Dosage: UNK

REACTIONS (4)
  - DECREASED INTEREST [None]
  - EMOTIONAL DISORDER [None]
  - GASTRIC DISORDER [None]
  - PAIN [None]
